FAERS Safety Report 9036190 (Version 2)
Quarter: 2013Q1

REPORT INFORMATION
  Report Type: Spontaneous
  Country: FR (occurrence: None)
  Receive Date: 20130116
  Receipt Date: 20130212
  Transmission Date: 20140127
  Serious: Yes (Disabling)
  Sender: FDA-Public Use
  Company Number: 201301IM003065

PATIENT
  Age: 10 Year
  Sex: Female

DRUGS (11)
  1. IMUKIN [Suspect]
     Route: 058
     Dates: start: 201201
  2. AMIKACINE MYLAN [Suspect]
     Route: 042
     Dates: start: 201201, end: 20120906
  3. CIFLOX [Suspect]
     Route: 042
     Dates: start: 201201
  4. VANCOMYCINE [Concomitant]
  5. TAZOCILLINE [Concomitant]
  6. GAMMAGARD [Concomitant]
  7. MABTHERA [Concomitant]
  8. BACTRIM [Concomitant]
  9. RIFADINE [Concomitant]
  10. ZOPHREN [Concomitant]
  11. MYAMBUTOL [Concomitant]

REACTIONS (1)
  - Deafness unilateral [None]
